FAERS Safety Report 13078257 (Version 2)
Quarter: 2017Q1

REPORT INFORMATION
  Report Type: Spontaneous
  Country: IT (occurrence: IT)
  Receive Date: 20170102
  Receipt Date: 20170217
  Transmission Date: 20170428
  Serious: Yes (Other)
  Sender: FDA-Public Use
  Company Number: IT-AUROBINDO-AUR-APL-2016-16054

PATIENT
  Age: 41 Year
  Sex: Male

DRUGS (2)
  1. LAMOTRIGINE DISPERSABLE TABLET [Suspect]
     Active Substance: LAMOTRIGINE
     Dosage: UNK
     Route: 048
  2. LAMOTRIGINE DISPERSABLE TABLET [Suspect]
     Active Substance: LAMOTRIGINE
     Indication: EPILEPSY
     Dosage: UNK
     Route: 048

REACTIONS (2)
  - Product substitution issue [Unknown]
  - Seizure [Unknown]

NARRATIVE: CASE EVENT DATE: 201509
